FAERS Safety Report 15246923 (Version 1)
Quarter: 2018Q3

REPORT INFORMATION
  Report Type: Spontaneous
  Country: US (occurrence: US)
  Receive Date: 20180803
  Receipt Date: 20180803
  Transmission Date: 20181010
  Serious: Yes (Life-Threatening, Other)
  Sender: FDA-Public Use
  Company Number: None

PATIENT
  Age: 46 Year
  Sex: Male
  Weight: 173.25 kg

DRUGS (7)
  1. ACETAMINOPHEN. [Concomitant]
     Active Substance: ACETAMINOPHEN
  2. MULTIVITAMIN [Concomitant]
     Active Substance: VITAMINS
  3. PRILOSEC [Concomitant]
     Active Substance: OMEPRAZOLE MAGNESIUM
  4. LEVOTHYROXINE. [Concomitant]
     Active Substance: LEVOTHYROXINE
  5. VITAMIN D [Concomitant]
     Active Substance: CHOLECALCIFEROL
  6. HEADACHE RELIEF EXTRA STRENGTH [Suspect]
     Active Substance: ACETAMINOPHEN\ASPIRIN\CAFFEINE
     Indication: PAIN
     Dosage: ?          QUANTITY:2 TABLET(S);?
     Route: 048
     Dates: start: 20180803, end: 20180803
  7. VIATAMIN D COMPLEX [Concomitant]

REACTIONS (11)
  - Hypersensitivity [None]
  - Respiratory disorder [None]
  - Documented hypersensitivity to administered product [None]
  - Swelling face [None]
  - Pruritus [None]
  - Wrong drug administered [None]
  - Product appearance confusion [None]
  - Urticaria [None]
  - Product label issue [None]
  - Product packaging confusion [None]
  - Product label confusion [None]

NARRATIVE: CASE EVENT DATE: 20180803
